FAERS Safety Report 6214563-7 (Version None)
Quarter: 2009Q2

REPORT INFORMATION
  Report Type: 
  Country: None (occurrence: None)
  Receive Date: 20090602
  Receipt Date: 20090520
  Transmission Date: 20091009
  Serious: Yes (Disabling)
  Sender: FDA-Public Use
  Company Number: 2009-02076

PATIENT
  Sex: Female

DRUGS (2)
  1. VELCADE [Suspect]
     Indication: MULTIPLE MYELOMA
     Dosage: INTRAVENOUS
     Route: 042
  2. PREDNISONE TAB [Suspect]
     Indication: MULTIPLE MYELOMA

REACTIONS (2)
  - MONOPLEGIA [None]
  - PLASMACYTOMA [None]
